FAERS Safety Report 9133052 (Version 1)
Quarter: 2013Q1

REPORT INFORMATION
  Report Type: Spontaneous
  Country: US (occurrence: US)
  Receive Date: 20130301
  Receipt Date: 20130301
  Transmission Date: 20140127
  Serious: Yes (Hospitalization, Other)
  Sender: FDA-Public Use
  Company Number: US-PFIZER INC-2013069489

PATIENT
  Age: 46 Year
  Sex: Male
  Weight: 90.7 kg

DRUGS (2)
  1. BENEFIX [Suspect]
     Indication: HAEMOPHILIA
     Dosage: 100 IU/KG, WEEKLY (PROPHYLACTICALLY GIVEN 3 TIMES PER WEEK)
  2. BENEFIX [Suspect]
     Dosage: 100 IU/KG, AS NEEDED (PER INFUSION,ON DEMAND)

REACTIONS (5)
  - Factor IX inhibition [Unknown]
  - Disease complication [Unknown]
  - Haemorrhage [Unknown]
  - Joint injury [Unknown]
  - Off label use [Unknown]
